FAERS Safety Report 11289508 (Version 1)
Quarter: 2015Q3

REPORT INFORMATION
  Report Type: Spontaneous
  Country: US (occurrence: US)
  Receive Date: 20150721
  Receipt Date: 20150721
  Transmission Date: 20151125
  Serious: No
  Sender: FDA-Public Use
  Company Number: CHPA2015US008673

PATIENT
  Age: 54 Year
  Sex: Male

DRUGS (4)
  1. VOLTAREN [Suspect]
     Active Substance: DICLOFENAC SODIUM
     Indication: ARTHRALGIA
     Dosage: ONE THIRD OF DOSAGE CARD, QID TO KNEE
     Route: 061
  2. VOLTAREN [Suspect]
     Active Substance: DICLOFENAC SODIUM
     Indication: PLANTAR FASCIITIS
  3. VOLTAREN [Suspect]
     Active Substance: DICLOFENAC SODIUM
     Indication: ARTHRITIS
     Dosage: DAB OR AN INCH, QID TO FEET
     Route: 061
  4. VOLTAREN [Suspect]
     Active Substance: DICLOFENAC SODIUM
     Indication: EPICONDYLITIS

REACTIONS (5)
  - Incorrect dose administered [Unknown]
  - Wrong technique in product usage process [Unknown]
  - Product use issue [Unknown]
  - Sensory disturbance [Not Recovered/Not Resolved]
  - Therapeutic response unexpected [Unknown]

NARRATIVE: CASE EVENT DATE: 2015
